FAERS Safety Report 9162804 (Version 1)
Quarter: 2013Q1

REPORT INFORMATION
  Report Type: Spontaneous
  Country: US (occurrence: None)
  Receive Date: 20130313
  Receipt Date: 20130313
  Transmission Date: 20140127
  Serious: Yes (Hospitalization)
  Sender: FDA-Public Use
  Company Number: None

PATIENT
  Sex: Male
  Weight: 86.18 kg

DRUGS (1)
  1. CYMBALTA [Suspect]
     Indication: BACK PAIN
     Dosage: TAKING IT FOR OVER 1 YR.

REACTIONS (4)
  - Tremor [None]
  - Dyskinesia [None]
  - Hallucination [None]
  - Serotonin syndrome [None]
